FAERS Safety Report 10016778 (Version 2)
Quarter: 2014Q2

REPORT INFORMATION
  Report Type: Report from Study
  Country: BR (occurrence: BR)
  Receive Date: 20140318
  Receipt Date: 20140415
  Transmission Date: 20141212
  Serious: Yes (Hospitalization, Other)
  Sender: FDA-Public Use
  Company Number: PHHY2014BR031670

PATIENT
  Sex: Male

DRUGS (7)
  1. TRILEPTAL [Suspect]
     Indication: AGITATION
     Dosage: 2 DF, (IN THE MORNING AND IN THE NIGHT)
     Route: 048
     Dates: start: 2008, end: 201205
  2. TRILEPTAL [Suspect]
     Indication: CONVULSION
  3. GARDENAL [Concomitant]
     Indication: CONVULSION
     Dosage: UNK UKN, UNK
     Dates: start: 198211, end: 20140221
  4. CLONAZEPAM [Concomitant]
     Indication: CONVULSION
     Dosage: UNK UKN, UNK
  5. CLONAZEPAM [Concomitant]
     Indication: AGITATION
  6. RISPERIDONE [Concomitant]
     Indication: AGGRESSION
     Dosage: UNK UKN, UNK
  7. RISPERIDONE [Concomitant]
     Indication: SCHIZOPHRENIA

REACTIONS (3)
  - Nervous system disorder [Unknown]
  - Convulsion [Not Recovered/Not Resolved]
  - Drug ineffective [Not Recovered/Not Resolved]
